FAERS Safety Report 12009691 (Version 2)
Quarter: 2016Q2

REPORT INFORMATION
  Report Type: Spontaneous
  Country: DE (occurrence: DE)
  Receive Date: 20160205
  Receipt Date: 20160402
  Transmission Date: 20160815
  Serious: Yes (Hospitalization, Other)
  Sender: FDA-Public Use
  Company Number: DE-ACCORD-037432

PATIENT
  Age: 42 Year
  Sex: Male
  Weight: 87 kg

DRUGS (6)
  1. NYSTATIN. [Concomitant]
     Active Substance: NYSTATIN
     Indication: ORAL INFECTION
  2. PIPAMPERONE [Concomitant]
     Active Substance: PIPAMPERONE
     Indication: POOR QUALITY SLEEP
  3. QUETIAPINE. [Suspect]
     Active Substance: QUETIAPINE
     Indication: RESTLESSNESS
     Dosage: IN EVENING
     Route: 048
     Dates: start: 201305
  4. ATORVASTATIN [Concomitant]
     Active Substance: ATORVASTATIN
     Indication: HYPERLIPIDAEMIA
  5. OLANZAPINE GLENMARK [Concomitant]
     Indication: POOR QUALITY SLEEP
     Dosage: STARTED SINCE 5 YEARS AGO.?FIRST RECEIVED ZYPREXA THEN SHIFT TO OLANZAPINE GLENMARK 1-1.5 YEAR AGO
     Route: 048
  6. FLUCONAZOLE. [Concomitant]
     Active Substance: FLUCONAZOLE
     Indication: ORAL INFECTION

REACTIONS (2)
  - Off label use [Unknown]
  - Myocardial infarction [Recovered/Resolved]

NARRATIVE: CASE EVENT DATE: 201305
